FAERS Safety Report 5420374-2 (Version None)
Quarter: 2007Q3

REPORT INFORMATION
  Report Type: 
  Country: None (occurrence: None)
  Receive Date: 20070816
  Receipt Date: 20070807
  Transmission Date: 20080115
  Serious: Yes (Other)
  Sender: FDA-Public Use
  Company Number: 2007SP016086

PATIENT
  Age: 27 Year
  Sex: Female

DRUGS (2)
  1. INTRON A [Suspect]
     Indication: HEPATITIS B
     Dates: start: 20070504
  2. HEPSERA [Suspect]
     Indication: HEPATITIS B
     Dates: start: 20070504

REACTIONS (9)
  - ANAEMIA [None]
  - ANXIETY [None]
  - APPENDICECTOMY [None]
  - FATIGUE [None]
  - MYALGIA [None]
  - ORAL INTAKE REDUCED [None]
  - PANIC ATTACK [None]
  - PARAESTHESIA [None]
  - WEIGHT DECREASED [None]
